FAERS Safety Report 21000456 (Version 1)
Quarter: 2022Q2

REPORT INFORMATION
  Report Type: Spontaneous
  Country: US (occurrence: US)
  Receive Date: 20220623
  Receipt Date: 20220623
  Transmission Date: 20220721
  Serious: No
  Sender: FDA-Public Use
  Company Number: US-LUNDBECK-DKLU3048560

PATIENT
  Age: 5 Decade
  Sex: Female

DRUGS (2)
  1. VYEPTI [Suspect]
     Active Substance: EPTINEZUMAB-JJMR
     Indication: Product used for unknown indication
     Route: 041
  2. VYEPTI [Suspect]
     Active Substance: EPTINEZUMAB-JJMR
     Dosage: 200
     Route: 041

REACTIONS (6)
  - Irritability [Unknown]
  - Mood swings [Unknown]
  - Nervousness [Unknown]
  - Blepharospasm [Unknown]
  - Migraine [Unknown]
  - Off label use [Unknown]
